FAERS Safety Report 21413193 (Version 1)
Quarter: 2022Q4

REPORT INFORMATION
  Report Type: Spontaneous
  Country: US (occurrence: None)
  Receive Date: 20221004
  Receipt Date: 20221004
  Transmission Date: 20230113
  Serious: Yes (Death)
  Sender: FDA-Public Use
  Company Number: None

PATIENT
  Age: 51 Year
  Sex: Male

DRUGS (2)
  1. MEKINIST [Suspect]
     Active Substance: TRAMETINIB DIMETHYL SULFOXIDE
     Indication: Skin cancer
     Dosage: FREQUENCY : DAILY;?
     Route: 048
     Dates: start: 20220823, end: 20220915
  2. TAFINLAR [Suspect]
     Active Substance: DABRAFENIB MESYLATE
     Indication: Skin cancer
     Dosage: FREQUENCY : TWICE A DAY;?
     Route: 048
     Dates: start: 20220823, end: 20220915

REACTIONS (4)
  - Therapy interrupted [None]
  - Brain neoplasm malignant [None]
  - Disease progression [None]
  - Cerebral haemorrhage [None]

NARRATIVE: CASE EVENT DATE: 20220929
